FAERS Safety Report 18816754 (Version 9)
Quarter: 2022Q2

REPORT INFORMATION
  Report Type: Report from Study
  Country: BE (occurrence: BE)
  Receive Date: 20210201
  Receipt Date: 20220420
  Transmission Date: 20220720
  Serious: Yes (Hospitalization, Other)
  Sender: FDA-Public Use
  Company Number: BE-BAYER-2021-038211

PATIENT
  Age: 68 Year
  Sex: Male
  Weight: 65 kg

DRUGS (29)
  1. XARELTO [Suspect]
     Active Substance: RIVAROXABAN
     Indication: Coronary artery disease
     Dosage: 2.5 MG, BID
     Route: 048
     Dates: start: 20200702, end: 20210121
  2. XARELTO [Suspect]
     Active Substance: RIVAROXABAN
     Indication: Peripheral arterial occlusive disease
     Dosage: 2.5 MG, BID
     Route: 048
     Dates: start: 20210216, end: 20210427
  3. XARELTO [Suspect]
     Active Substance: RIVAROXABAN
     Indication: Cardiovascular event prophylaxis
     Dosage: 2.5 UNK
     Route: 048
     Dates: start: 20210430, end: 20211129
  4. XARELTO [Suspect]
     Active Substance: RIVAROXABAN
     Indication: Coronary artery disease
     Dosage: 2.5 UNK
     Route: 048
     Dates: start: 20211202
  5. ASPIRIN [Suspect]
     Active Substance: ASPIRIN
     Indication: Coronary artery disease
     Dosage: 80 MG, QD
     Route: 065
     Dates: start: 20190429, end: 20210202
  6. ASPIRIN [Suspect]
     Active Substance: ASPIRIN
     Indication: Peripheral arterial occlusive disease
     Dosage: 80 MG, QD
     Route: 065
     Dates: start: 20210206
  7. ASPIRIN [Suspect]
     Active Substance: ASPIRIN
     Indication: Cardiovascular event prophylaxis
  8. PANTOPRAZOLE [Concomitant]
     Active Substance: PANTOPRAZOLE
     Dosage: 40 MG, QD
     Dates: start: 20190725, end: 20210122
  9. PANTOPRAZOLE [Concomitant]
     Active Substance: PANTOPRAZOLE
     Dosage: 40 MG, BID
     Dates: start: 20210122, end: 20210126
  10. PANTOPRAZOLE [Concomitant]
     Active Substance: PANTOPRAZOLE
     Dosage: 40 UNK
     Dates: start: 20210125, end: 20210125
  11. ALLOPURINOL [Concomitant]
     Active Substance: ALLOPURINOL
     Dosage: 300 MG, QD
     Dates: start: 20140127
  12. RAMIPRIL [Concomitant]
     Active Substance: RAMIPRIL
     Dosage: 2.5 MG, QD
     Dates: start: 20190415, end: 20190726
  13. RAMIPRIL [Concomitant]
     Active Substance: RAMIPRIL
     Dosage: 5 MG, QD
     Dates: start: 20190912
  14. ROSUVASTATIN CALCIUM [Concomitant]
     Active Substance: ROSUVASTATIN CALCIUM
     Dosage: 20 MG, QD
     Dates: start: 20191202
  15. ROSUVASTATIN CALCIUM [Concomitant]
     Active Substance: ROSUVASTATIN CALCIUM
     Dosage: 40 MG, QD
     Dates: start: 20190722, end: 20191202
  16. ROSUVASTATIN CALCIUM [Concomitant]
     Active Substance: ROSUVASTATIN CALCIUM
     Dosage: 20 UNK
     Dates: start: 20191202
  17. BISOPROLOL [Concomitant]
     Active Substance: BISOPROLOL
     Dosage: 2.5 MG, BID
     Dates: start: 20190724, end: 20191231
  18. BISOPROLOL [Concomitant]
     Active Substance: BISOPROLOL
     Dosage: 2.5 MG, BID
     Dates: start: 20191231, end: 20200804
  19. BISOPROLOL [Concomitant]
     Active Substance: BISOPROLOL
     Dosage: 5 UNK
     Dates: start: 20200805
  20. AMLODIPINE [Concomitant]
     Active Substance: AMLODIPINE BESYLATE
     Dosage: 5 MG, QD
     Dates: start: 20191231
  21. ACETAMINOPHEN [Concomitant]
     Active Substance: ACETAMINOPHEN
     Dosage: 1 G, PRN
     Dates: start: 20190926, end: 20210206
  22. ACETAMINOPHEN [Concomitant]
     Active Substance: ACETAMINOPHEN
     Dosage: 1 G, QID
     Dates: start: 20190723, end: 20190926
  23. EPINEPHRINE [Concomitant]
     Active Substance: EPINEPHRINE
     Dosage: 2 MG
     Dates: start: 20210125, end: 20210125
  24. EPINEPHRINE [Concomitant]
     Active Substance: EPINEPHRINE
     Dosage: 1 MG, QD
     Dates: start: 20210429, end: 20210429
  25. ENOXAPARIN [Concomitant]
     Active Substance: ENOXAPARIN
     Dosage: 40 MG, QD
     Dates: start: 20210124, end: 20210126
  26. ENOXAPARIN [Concomitant]
     Active Substance: ENOXAPARIN
     Dosage: 40 UNK
     Dates: start: 20210203, end: 20210205
  27. EFEDRINE HCL [Concomitant]
     Dosage: 6 MG, BID
     Dates: start: 20210429, end: 20210429
  28. PHENYLEPHRINE HYDROCHLORIDE [Concomitant]
     Active Substance: PHENYLEPHRINE HYDROCHLORIDE
     Dosage: 0.05 MG, QID
     Dates: start: 20210429, end: 20210429
  29. SCOPOLAMINE BUTYLBRMIDE [Concomitant]
     Dosage: 20 MG, QD
     Dates: start: 20210429, end: 20210429

REACTIONS (4)
  - Colon cancer [Not Recovered/Not Resolved]
  - Acute myocardial infarction [Recovered/Resolved]
  - Acute kidney injury [Recovered/Resolved]
  - Microcytic anaemia [Recovered/Resolved with Sequelae]

NARRATIVE: CASE EVENT DATE: 20210121
